FAERS Safety Report 4388823-9 (Version None)
Quarter: 2004Q2

REPORT INFORMATION
  Report Type: 
  Country: None (occurrence: None)
  Receive Date: 20040628
  Receipt Date: 20040610
  Transmission Date: 20050107
  Serious: Yes (Hospitalization)
  Sender: FDA-Public Use
  Company Number: 199755

PATIENT
  Sex: Female

DRUGS (1)
  1. AVONEX [Suspect]
     Indication: MULTIPLE SCLEROSIS

REACTIONS (7)
  - DEPRESSION [None]
  - EYE DISORDER [None]
  - LYMPHOEDEMA [None]
  - LYMPHOMA [None]
  - MENTAL DISORDER [None]
  - MOVEMENT DISORDER [None]
  - NEOPLASM [None]
